FAERS Safety Report 11241877 (Version 1)
Quarter: 2015Q3

REPORT INFORMATION
  Report Type: Spontaneous
  Country: US (occurrence: US)
  Receive Date: 20150706
  Receipt Date: 20150706
  Transmission Date: 20151125
  Serious: Yes (Death)
  Sender: FDA-Public Use
  Company Number: US-JNJFOC-20150703507

PATIENT
  Age: 80 Year
  Sex: Male

DRUGS (7)
  1. IMBRUVICA [Suspect]
     Active Substance: IBRUTINIB
     Indication: CHRONIC LYMPHOCYTIC LEUKAEMIA
     Route: 048
     Dates: start: 20141205
  2. AMOXICILLIN. [Concomitant]
     Active Substance: AMOXICILLIN
  3. PREDNISONE. [Concomitant]
     Active Substance: PREDNISONE
  4. ALLOPURINOL. [Concomitant]
     Active Substance: ALLOPURINOL
  5. FLOMAX [Concomitant]
     Active Substance: TAMSULOSIN HYDROCHLORIDE
  6. PROSCAR [Concomitant]
     Active Substance: FINASTERIDE
  7. ACYCLOVIR                          /00587301/ [Concomitant]
     Active Substance: ACYCLOVIR

REACTIONS (3)
  - White blood cell count decreased [Unknown]
  - Incorrect dose administered [Recovered/Resolved]
  - Death [Fatal]

NARRATIVE: CASE EVENT DATE: 20141205
